FAERS Safety Report 16661301 (Version 1)
Quarter: 2019Q3

REPORT INFORMATION
  Report Type: Spontaneous
  Country: US (occurrence: US)
  Receive Date: 20190619
  Receipt Date: 20190619
  Transmission Date: 20191004
  Serious: Yes (Hospitalization)
  Sender: FDA-Public Use
  Company Number: None

PATIENT
  Age: 60 Year
  Sex: Female

DRUGS (15)
  1. ALLOPURINOL TAB [Concomitant]
     Active Substance: ALLOPURINOL
  2. CHILORTHALID TAB [Concomitant]
  3. LANTUS INJ [Concomitant]
  4. NOVOLOG INJ FLEXPEN [Concomitant]
  5. CREON CAP [Concomitant]
  6. DOXYCYCLINE TAB [Concomitant]
  7. LISINOPRIL TAB [Concomitant]
  8. OMEPRAZOLE TAB [Concomitant]
  9. MNOCYCLINE CAP [Concomitant]
  10. HUMIRA [Suspect]
     Active Substance: ADALIMUMAB
     Route: 058
     Dates: start: 20180801
  11. TOBRAMYCIN INJ [Concomitant]
  12. AMLODIPINE TAB [Concomitant]
  13. ALBUTEROL NEB [Concomitant]
     Active Substance: ALBUTEROL
  14. GABAPENTIN TAB [Concomitant]
  15. PROAIR HFA AER [Concomitant]

REACTIONS (1)
  - Diverticulitis [None]

NARRATIVE: CASE EVENT DATE: 20190512
